FAERS Safety Report 8285112-7 (Version None)
Quarter: 2012Q2

REPORT INFORMATION
  Report Type: 
  Country: None (occurrence: None)
  Receive Date: 20120413
  Receipt Date: 20110325
  Transmission Date: 20120825
  Serious: No
  Sender: FDA-Public Use
  Company Number: US-ASTRAZENECA-2011SE17132

PATIENT
  Age: 71 Year
  Sex: Female

DRUGS (5)
  1. NEXIUM [Suspect]
     Route: 048
  2. LISINOPRIL [Suspect]
     Route: 048
  3. MAGNESIUM [Concomitant]
  4. PRILOSEC OTC [Suspect]
     Route: 048
     Dates: start: 20110315, end: 20110323
  5. VITAMIN E [Concomitant]

REACTIONS (4)
  - DISCOMFORT [None]
  - CHEST PAIN [None]
  - ABDOMINAL DISTENSION [None]
  - CONSTIPATION [None]
